FAERS Safety Report 11555565 (Version 1)
Quarter: 2015Q3

REPORT INFORMATION
  Report Type: Spontaneous
  Country: GB (occurrence: GB)
  Receive Date: 20150925
  Receipt Date: 20150925
  Transmission Date: 20151125
  Serious: Yes (Disabling)
  Sender: FDA-Public Use
  Company Number: GB-PFIZER INC-2015317133

PATIENT
  Age: 69 Year
  Sex: Female
  Weight: 69 kg

DRUGS (7)
  1. PROPRANOLOL [Concomitant]
     Active Substance: PROPRANOLOL\PROPRANOLOL HYDROCHLORIDE
     Dosage: 1 DF, 1X/DAY
     Dates: start: 20150903
  2. SERTRALINE HCL [Suspect]
     Active Substance: SERTRALINE HYDROCHLORIDE
     Dosage: UNK
     Dates: start: 20150907
  3. OMEPRAZOLE. [Concomitant]
     Active Substance: OMEPRAZOLE
     Dosage: 1 DF, 1X/DAY
     Dates: start: 20150821
  4. AMITRIPTYLINE HYDROCHLORIDE. [Concomitant]
     Active Substance: AMITRIPTYLINE HYDROCHLORIDE
     Dosage: 1 DF, 1X/DAY AT NIGHT
     Dates: start: 20150810
  5. FULTIUM-D3 [Concomitant]
     Dosage: 1 DF, 1X/DAY
     Dates: start: 20150522
  6. IBUPROFEN. [Concomitant]
     Active Substance: IBUPROFEN
     Dosage: 1 DF, 3X/DAY
     Dates: start: 20150821
  7. AMOXICILLIN. [Concomitant]
     Active Substance: AMOXICILLIN
     Dosage: 1 DF, 3X/DAY
     Dates: start: 20150901, end: 20150908

REACTIONS (3)
  - Hyperhidrosis [Recovered/Resolved]
  - Vomiting [Recovering/Resolving]
  - Hyperreflexia [Recovering/Resolving]

NARRATIVE: CASE EVENT DATE: 20150907
